FAERS Safety Report 19763196 (Version 1)
Quarter: 2021Q3

REPORT INFORMATION
  Report Type: Spontaneous
  Country: US (occurrence: US)
  Receive Date: 20210825
  Receipt Date: 20210825
  Transmission Date: 20211014
  Serious: No
  Sender: FDA-Public Use
  Company Number: None

PATIENT
  Sex: Female

DRUGS (12)
  1. GLATIRAMER 40MG/ML SYR [Suspect]
     Active Substance: GLATIRAMER
     Indication: MULTIPLE SCLEROSIS
     Route: 058
     Dates: start: 20180825
  2. EZETIMBE [Concomitant]
     Active Substance: EZETIMIBE
  3. VITAMIN C [Concomitant]
     Active Substance: ASCORBIC ACID
  4. KLONOPIN [Concomitant]
     Active Substance: CLONAZEPAM
  5. VITAMIN B12 [Concomitant]
     Active Substance: CYANOCOBALAMIN
  6. VITAMIN D [Concomitant]
     Active Substance: VITAMIN D NOS
  7. GABAPENTIN. [Concomitant]
     Active Substance: GABAPENTIN
  8. PRILOSEC [Concomitant]
     Active Substance: OMEPRAZOLE MAGNESIUM
  9. EDARBI [Concomitant]
     Active Substance: AZILSARTAN KAMEDOXOMIL
  10. MULTI?VIT/FL CHW [Concomitant]
  11. METOPROL TAR [Concomitant]
  12. TRAMADL/APAP [Concomitant]

REACTIONS (1)
  - Neoplasm malignant [None]
